FAERS Safety Report 4954385-8 (Version None)
Quarter: 2006Q1

REPORT INFORMATION
  Report Type: 
  Country: None (occurrence: None)
  Receive Date: 20060322
  Receipt Date: 20060313
  Transmission Date: 20060701
  Serious: Yes (Other)
  Sender: FDA-Public Use
  Company Number: TPA2006A00446

PATIENT

DRUGS (7)
  1. PIOGLITAZONE HCL [Suspect]
     Indication: ARTERIAL RESTENOSIS
     Dosage: 30 MG, 1 IN 1 D, PER ORAL
     Route: 048
  2. ASPIRIN (ACETYLSALICYLIC ACID) (500 MILLIGRAM) [Concomitant]
  3. HEPARIN BOLUS (HEPARIN) [Concomitant]
  4. UNKNOWN BETA BLOCKERS (BETA BLOCKING AGENTS) [Concomitant]
  5. UNKNOWN STATINS (ALL OTHER THERAPEUTIC PRODUCTS) [Concomitant]
  6. UNKNOWN ANGIOTENSIN-CONVERTING ENZYMES (ALL OTHER THERAPEUTIC PRODUCTS [Concomitant]
  7. CLOPIDOGREL (CLOPIDOGREL) (75 MILLIGRAM) [Concomitant]

REACTIONS (1)
  - NEOPLASM MALIGNANT [None]
